FAERS Safety Report 24380626 (Version 1)
Quarter: 2024Q3

REPORT INFORMATION
  Report Type: Spontaneous
  Country: US (occurrence: US)
  Receive Date: 20240930
  Receipt Date: 20240930
  Transmission Date: 20241016
  Serious: No
  Sender: MYLAN
  Company Number: US-MYLANLABS-2024M1085597

PATIENT
  Age: 43 Year

DRUGS (2)
  1. LISDEXAMFETAMINE DIMESYLATE [Suspect]
     Active Substance: LISDEXAMFETAMINE DIMESYLATE
     Indication: Attention deficit hyperactivity disorder
     Dosage: UNK
     Route: 065
  2. LISDEXAMFETAMINE DIMESYLATE [Suspect]
     Active Substance: LISDEXAMFETAMINE DIMESYLATE
     Indication: Eating disorder

REACTIONS (6)
  - Somnolence [Unknown]
  - Fatigue [Unknown]
  - Vomiting [Unknown]
  - Therapeutic response changed [Unknown]
  - Product substitution issue [Unknown]
  - Product quality issue [Unknown]
